FAERS Safety Report 9688127 (Version 3)
Quarter: 2014Q1

REPORT INFORMATION
  Report Type: Spontaneous
  Country: GR (occurrence: GR)
  Receive Date: 20131114
  Receipt Date: 20140120
  Transmission Date: 20141002
  Serious: Yes (Other)
  Sender: FDA-Public Use
  Company Number: GR-ELI_LILLY_AND_COMPANY-GR201311002483

PATIENT
  Age: 82 Year
  Sex: Female

DRUGS (2)
  1. CYMBALTA [Suspect]
     Indication: SOMATOFORM DISORDER
     Dosage: 30 MG, QD
     Route: 048
     Dates: start: 20131023
  2. NOVATEC /00894001/ [Interacting]
     Indication: PAIN
     Dosage: UNK, UNKNOWN
     Route: 048
     Dates: start: 201310

REACTIONS (3)
  - Hepatic enzyme increased [Recovered/Resolved]
  - Off label use [Unknown]
  - Drug interaction [Unknown]
